FAERS Safety Report 5170703-2 (Version None)
Quarter: 2006Q4

REPORT INFORMATION
  Report Type: 
  Country: None (occurrence: None)
  Receive Date: 20060919
  Receipt Date: 20060616
  Transmission Date: 20070319
  Serious: No
  Sender: FDA-Public Use
  Company Number: 2006US001389

PATIENT
  Age: 75 Year
  Sex: Female

DRUGS (6)
  1. VESICARE [Suspect]
     Indication: HYPERTONIC BLADDER
     Dosage: SEE IMAGE
     Dates: start: 20050101, end: 20060401
  2. VESICARE [Suspect]
     Indication: HYPERTONIC BLADDER
     Dosage: SEE IMAGE
     Dates: start: 20060401, end: 20060601
  3. ANTIHYPERTENSIVES [Concomitant]
  4. MEDICATION FOR HIGH CHOLESTEROL [Concomitant]
  5. CENTRUM (BIOTIN, ASCORBIC ACID) [Concomitant]
  6. FOLIC ACID [Concomitant]

REACTIONS (1)
  - STOMACH DISCOMFORT [None]
